FAERS Safety Report 13758169 (Version 1)
Quarter: 2017Q3

REPORT INFORMATION
  Report Type: Spontaneous
  Country: US (occurrence: US)
  Receive Date: 20170717
  Receipt Date: 20170717
  Transmission Date: 20171127
  Serious: No
  Sender: FDA-Public Use
  Company Number: US-SHIRE-US201715068

PATIENT
  Sex: Female
  Weight: 65.31 kg

DRUGS (1)
  1. CUVITRU [Suspect]
     Active Substance: HUMAN IMMUNOGLOBULIN G
     Indication: IMMUNODEFICIENCY
     Dosage: 20 G, 1X/2WKS
     Route: 058
     Dates: start: 20170629

REACTIONS (3)
  - Blood glucose increased [Unknown]
  - Contusion [Unknown]
  - Hypotension [Unknown]
